FAERS Safety Report 7564475-1 (Version None)
Quarter: 2011Q2

REPORT INFORMATION
  Report Type: 
  Country: None (occurrence: None)
  Receive Date: 20110622
  Receipt Date: 20110615
  Transmission Date: 20111010
  Serious: Yes (Hospitalization)
  Sender: FDA-Public Use
  Company Number: PHHO2011FR10312

PATIENT
  Sex: Male
  Weight: 56 kg

DRUGS (11)
  1. HYDROXYCHLOROQUINE SULFATE [Concomitant]
  2. SULFAMETHOXYPYRAZINE/TRIMETHOPRIM [Concomitant]
  3. FERROUS SULFATE TAB [Concomitant]
  4. CELLCEPT [Suspect]
     Indication: RENAL TRANSPLANT
     Dosage: 500 MG, UNK
     Route: 048
     Dates: start: 20101124
  5. PREDNISONE [Concomitant]
     Dosage: 10 MG, UNK
     Route: 048
     Dates: start: 20101201
  6. BISOPROLOL FUMARATE [Concomitant]
  7. AMLODIPINE [Concomitant]
  8. TAMSULOSIN HCL [Concomitant]
  9. OMEPRAZOLE [Concomitant]
  10. FUROSEMIDE [Concomitant]
  11. SANDIMMUNE [Suspect]
     Indication: RENAL TRANSPLANT
     Dosage: 3 MG, UNK
     Route: 048
     Dates: start: 20101129

REACTIONS (1)
  - PANCYTOPENIA [None]
